FAERS Safety Report 14198102 (Version 2)
Quarter: 2018Q1

REPORT INFORMATION
  Report Type: Spontaneous
  Country: BR (occurrence: BR)
  Receive Date: 20171117
  Receipt Date: 20180109
  Transmission Date: 20180508
  Serious: Yes (Death, Hospitalization, Other)
  Sender: FDA-Public Use
  Company Number: BR-AMGEN-BRASP2016007245

PATIENT
  Age: 40 Year
  Sex: Male
  Weight: 91 kg

DRUGS (7)
  1. ENBREL [Suspect]
     Active Substance: ETANERCEPT
     Indication: PSORIASIS
     Dosage: 50 MG, 1X/WEEK
     Route: 058
     Dates: start: 20150318
  2. DEPURA [Concomitant]
     Active Substance: CHOLECALCIFEROL
     Dosage: UNK
  3. CLOBETASOL PROPIONATE E [Concomitant]
     Dosage: UNK
  4. PREDNISONE. [Concomitant]
     Active Substance: PREDNISONE
     Indication: ADRENAL INSUFFICIENCY
     Dosage: STRENGTH 7.5 MG
     Dates: start: 2003
  5. OSCAL 500+D [Concomitant]
     Dosage: UNK
  6. METFORMIN [Concomitant]
     Active Substance: METFORMIN HYDROCHLORIDE
     Indication: DIABETES MELLITUS
     Dosage: UNK, 2X/DAY (STRENGTH 500 MG)
     Dates: start: 2003
  7. ENBREL [Suspect]
     Active Substance: ETANERCEPT
     Dosage: UNK
     Route: 065
     Dates: start: 201606

REACTIONS (15)
  - Impaired healing [Unknown]
  - Dyspnoea [Unknown]
  - Localised infection [Unknown]
  - Nasopharyngitis [Unknown]
  - Blood pressure decreased [Unknown]
  - Condition aggravated [Unknown]
  - Vomiting [Unknown]
  - Limb injury [Unknown]
  - Swelling [Unknown]
  - Infection [Unknown]
  - Cardiac arrest [Fatal]
  - Hepatic steatosis [Unknown]
  - Psoriasis [Unknown]
  - Haemorrhage [Unknown]
  - Skin exfoliation [Unknown]

NARRATIVE: CASE EVENT DATE: 201602
